FAERS Safety Report 8831912 (Version 1)
Quarter: 2012Q4

REPORT INFORMATION
  Report Type: 
  Country: DE (occurrence: DE)
  Receive Date: 20121008
  Receipt Date: 20121008
  Transmission Date: 20130627
  Serious: Yes (Other)
  Sender: FDA-Public Use
  Company Number: DE-ASTRAZENECA-2012SE75107

PATIENT
  Sex: Male

DRUGS (3)
  1. METOPROLOL [Suspect]
     Route: 048
     Dates: start: 2010
  2. CANDESARTAN/HYDROCHLOROTHIAZID GENERIC (RATIOPHARM) [Suspect]
     Route: 048
     Dates: start: 201208, end: 20120907
  3. CANDESARTAN/HYDROCHLOROTHIAZID GENERIC (RATIOPHARM) [Suspect]

REACTIONS (3)
  - Ill-defined disorder [Recovered/Resolved]
  - Gait disturbance [Recovered/Resolved]
  - Arrhythmia [Recovering/Resolving]
